FAERS Safety Report 4996379-2 (Version None)
Quarter: 2006Q2

REPORT INFORMATION
  Report Type: 
  Country: None (occurrence: None)
  Receive Date: 20060509
  Receipt Date: 20060427
  Transmission Date: 20061013
  Serious: Yes (Other)
  Sender: FDA-Public Use
  Company Number: FR-JNJFOC-20060205839

PATIENT
  Age: 45 Year
  Sex: Male
  Weight: 76 kg

DRUGS (8)
  1. REMICADE [Suspect]
     Route: 042
  2. REMICADE [Suspect]
     Dosage: FIRST INFUSION THREE YEARS AGO
     Route: 042
  3. REMICADE [Suspect]
     Dosage: FIRST INFUSION THREE YEARS AGO
     Route: 042
  4. REMICADE [Suspect]
     Dosage: FIRST INFUSION THREE YEARS AGO
     Route: 042
  5. REMICADE [Suspect]
     Dosage: FIRST INFUSION THREE YEARS AGO
     Route: 042
  6. REMICADE [Suspect]
     Indication: ANKYLOSING SPONDYLITIS
     Dosage: FIRST INFUSION THREE YEARS AGO
     Route: 042
  7. METHOTREXATE [Concomitant]
     Route: 065
  8. BIPROFENID [Concomitant]
     Route: 065

REACTIONS (1)
  - MALIGNANT MELANOMA [None]
